FAERS Safety Report 8477687-X (Version None)
Quarter: 2012Q2

REPORT INFORMATION
  Report Type: 
  Country: None (occurrence: None)
  Receive Date: 20120626
  Receipt Date: 20120626
  Transmission Date: 20120825
  Serious: No
  Sender: FDA-Public Use
  Company Number: None

PATIENT
  Age: 66 Year
  Sex: Male
  Weight: 115.5 kg

DRUGS (1)
  1. ULORIC [Suspect]
     Indication: GOUT
     Dosage: 1 TAB EVERY DAY PO
     Route: 048
     Dates: start: 20110818, end: 20111118

REACTIONS (4)
  - PRODUCT QUALITY ISSUE [None]
  - URTICARIA [None]
  - RASH [None]
  - ERYTHEMA [None]
